FAERS Safety Report 25620794 (Version 1)
Quarter: 2025Q3

REPORT INFORMATION
  Report Type: Spontaneous
  Country: EU (occurrence: EU)
  Receive Date: 20250730
  Receipt Date: 20250730
  Transmission Date: 20251020
  Serious: Yes (Hospitalization, Other)
  Sender: Unknown Manufacturer
  Company Number: EU-STRIDES ARCOLAB LIMITED-2025OS000291

PATIENT
  Age: 47 Year
  Sex: Male

DRUGS (13)
  1. ETOPOSIDE [Suspect]
     Active Substance: ETOPOSIDE
     Indication: Testis cancer
     Route: 065
  2. ETOPOSIDE [Suspect]
     Active Substance: ETOPOSIDE
     Indication: Testicular germ cell tumour
     Route: 065
  3. ETOPOSIDE [Suspect]
     Active Substance: ETOPOSIDE
     Route: 065
  4. ETOPOSIDE [Suspect]
     Active Substance: ETOPOSIDE
     Route: 065
  5. CARBOPLATIN [Suspect]
     Active Substance: CARBOPLATIN
     Indication: Testis cancer
     Route: 065
  6. CARBOPLATIN [Suspect]
     Active Substance: CARBOPLATIN
     Indication: Testicular germ cell tumour
     Route: 065
  7. CARBOPLATIN [Suspect]
     Active Substance: CARBOPLATIN
     Route: 065
  8. CISPLATIN [Suspect]
     Active Substance: CISPLATIN
     Indication: Testis cancer
     Route: 065
  9. CISPLATIN [Suspect]
     Active Substance: CISPLATIN
     Indication: Testicular germ cell tumour
     Route: 065
  10. CISPLATIN [Suspect]
     Active Substance: CISPLATIN
     Route: 065
  11. BLEOMYCIN [Suspect]
     Active Substance: BLEOMYCIN SULFATE
     Indication: Testis cancer
     Route: 065
  12. BLEOMYCIN [Suspect]
     Active Substance: BLEOMYCIN SULFATE
     Indication: Testicular germ cell tumour
     Route: 065
  13. BLEOMYCIN [Suspect]
     Active Substance: BLEOMYCIN SULFATE
     Route: 065

REACTIONS (9)
  - Haematotoxicity [Unknown]
  - Colitis [Unknown]
  - Hypokalaemia [Unknown]
  - Hyperalbuminaemia [Unknown]
  - Sepsis [None]
  - Peritonitis [Unknown]
  - Septic encephalopathy [None]
  - Neutropenia [Unknown]
  - Off label use [Unknown]
